FAERS Safety Report 8532633 (Version 2)
Quarter: 2013Q1

REPORT INFORMATION
  Report Type: Report from Study
  Country: DE (occurrence: LU)
  Receive Date: 20120426
  Receipt Date: 20130225
  Transmission Date: 20140127
  Serious: Yes (Hospitalization)
  Sender: FDA-Public Use
  Company Number: DE-ACTELION-A-US2011-64644

PATIENT
  Age: 37 Year
  Sex: Female

DRUGS (2)
  1. VENTAVIS [Suspect]
     Indication: PULMONARY ARTERIAL HYPERTENSION
     Route: 055
  2. BRONCHOSEDAL [Concomitant]

REACTIONS (7)
  - Depression [Unknown]
  - Cough [Unknown]
  - Migraine [Unknown]
  - Stress [Unknown]
  - Gastric disorder [Recovered/Resolved]
  - Fatigue [Unknown]
  - Headache [Unknown]
